FAERS Safety Report 9191091 (Version 1)
Quarter: 2013Q1

REPORT INFORMATION
  Report Type: Spontaneous
  Country: FR (occurrence: FR)
  Receive Date: 20130326
  Receipt Date: 20130326
  Transmission Date: 20140127
  Serious: Yes (Other)
  Sender: FDA-Public Use
  Company Number: FR-009507513-1302FRA008350

PATIENT
  Age: 18 Year
  Sex: Female
  Weight: 160 kg

DRUGS (1)
  1. NEXPLANON [Suspect]
     Indication: CONTRACEPTION
     Dosage: UNK
     Route: 058
     Dates: start: 20130206, end: 20130311

REACTIONS (5)
  - Erythema [Recovered/Resolved]
  - Implant site pain [Recovered/Resolved]
  - Implant site inflammation [Recovered/Resolved]
  - Discomfort [Recovered/Resolved]
  - Implant site pruritus [Recovered/Resolved]
